FAERS Safety Report 24602814 (Version 2)
Quarter: 2024Q4

REPORT INFORMATION
  Report Type: Report from Study
  Country: US (occurrence: US)
  Receive Date: 20241111
  Receipt Date: 20241215
  Transmission Date: 20250115
  Serious: No
  Sender: JOHNSON AND JOHNSON
  Company Number: US-JNJFOC-20241082157

PATIENT
  Sex: Female

DRUGS (1)
  1. TREMFYA [Suspect]
     Active Substance: GUSELKUMAB
     Indication: Product used for unknown indication
     Dosage: FREQUENCY:0 WEEKS, 2ND DOSE AT 4 WEEKS
     Route: 058

REACTIONS (2)
  - Device defective [Unknown]
  - Incorrect dose administered [Unknown]
